FAERS Safety Report 6453108-3 (Version None)
Quarter: 2009Q4

REPORT INFORMATION
  Report Type: 
  Country: None (occurrence: None)
  Receive Date: 20091117
  Receipt Date: 20091103
  Transmission Date: 20100525
  Serious: Yes (Hospitalization)
  Sender: FDA-Public Use
  Company Number: 002333

PATIENT
  Age: 68 Year
  Sex: Female

DRUGS (5)
  1. CO-CODAMOL (CO-CODAMOL) [Suspect]
     Dosage: (2 DF TID ORAL)
     Route: 048
  2. ALCOHOL /00002101/ (ALCOHOL) [Suspect]
  3. CLONAZEPAM [Suspect]
     Dosage: (0.5 MG QD)
  4. PHENELZINE SULFATE (PHENELZINE SULFATE) [Suspect]
  5. PREGABALIN [Suspect]
     Dosage: (75 MG BID)

REACTIONS (4)
  - ALCOHOL USE [None]
  - ARRHYTHMIA [None]
  - CHEST PAIN [None]
  - OVERDOSE [None]
